FAERS Safety Report 5417777-9 (Version None)
Quarter: 2007Q3

REPORT INFORMATION
  Report Type: 
  Country: None (occurrence: None)
  Receive Date: 20070817
  Receipt Date: 20070810
  Transmission Date: 20080115
  Serious: Yes (Other)
  Sender: FDA-Public Use
  Company Number: PHFR2006GB02466

PATIENT
  Sex: Female

DRUGS (1)
  1. GLEEVEC [Suspect]
     Route: 065

REACTIONS (3)
  - ABORTION INDUCED [None]
  - DRUG EXPOSURE DURING PREGNANCY [None]
  - EMOTIONAL DISORDER [None]
